FAERS Safety Report 7502944-0 (Version None)
Quarter: 2011Q2

REPORT INFORMATION
  Report Type: 
  Country: None (occurrence: None)
  Receive Date: 20110518
  Receipt Date: 20110502
  Transmission Date: 20111010
  Serious: Yes (Death, Other)
  Sender: FDA-Public Use
  Company Number: UCM201105-000009

PATIENT
  Age: 33 Year
  Sex: Female

DRUGS (4)
  1. FLUIDS [Suspect]
  2. SODIUM BICARBONATE [Suspect]
  3. TOPIRAMATE [Suspect]
  4. TROMETAMOL (TRISHYDROXYMETHYLAMINOMETHANE) [Suspect]

REACTIONS (9)
  - GRAND MAL CONVULSION [None]
  - RHABDOMYOLYSIS [None]
  - DRUG INEFFECTIVE [None]
  - METABOLIC ACIDOSIS [None]
  - OLIGURIA [None]
  - CONTINUOUS HAEMODIAFILTRATION [None]
  - MULTI-ORGAN FAILURE [None]
  - SHOCK [None]
  - LEUKOCYTOSIS [None]
